FAERS Safety Report 4709335-6 (Version None)
Quarter: 2005Q3

REPORT INFORMATION
  Report Type: 
  Country: None (occurrence: None)
  Receive Date: 20050708
  Receipt Date: 20050628
  Transmission Date: 20060218
  Serious: Yes (Hospitalization, Other)
  Sender: FDA-Public Use
  Company Number: DE-JNJFOC-20041006546

PATIENT
  Age: 46 Year
  Sex: Female

DRUGS (5)
  1. INFLIXIMAB [Suspect]
     Indication: ANKYLOSING SPONDYLITIS
     Route: 042
  2. INFLIXIMAB [Suspect]
     Indication: RHEUMATOID ARTHRITIS
     Route: 042
  3. METHOTREXATE [Concomitant]
     Route: 065
  4. DICLOFENAC SODIUM [Concomitant]
     Route: 065
  5. BETABLOCKER [Concomitant]
     Route: 065

REACTIONS (4)
  - BRAIN STEM ISCHAEMIA [None]
  - CEREBRAL INFARCTION [None]
  - FACIAL PAIN [None]
  - ORTHOPEDIC PROCEDURE [None]
